FAERS Safety Report 20001540 (Version 1)
Quarter: 2021Q4

REPORT INFORMATION
  Report Type: Spontaneous
  Country: US (occurrence: US)
  Receive Date: 20211027
  Receipt Date: 20211027
  Transmission Date: 20220303
  Serious: Yes (Hospitalization)
  Sender: FDA-Public Use
  Company Number: None

PATIENT
  Age: 50 Year
  Sex: Male
  Weight: 130 kg

DRUGS (1)
  1. CASIRIVIMAB\IMDEVIMAB [Suspect]
     Active Substance: CASIRIVIMAB\IMDEVIMAB
     Indication: Upper respiratory tract infection
     Route: 042
     Dates: start: 20210731, end: 20210731

REACTIONS (4)
  - Infusion site pain [None]
  - Infusion site swelling [None]
  - Injection site ulcer [None]
  - Wound [None]

NARRATIVE: CASE EVENT DATE: 20210731
